FAERS Safety Report 15627632 (Version 5)
Quarter: 2019Q1

REPORT INFORMATION
  Report Type: Report from Study
  Country: US (occurrence: US)
  Receive Date: 20181116
  Receipt Date: 20190311
  Transmission Date: 20190417
  Serious: No
  Sender: FDA-Public Use
  Company Number: PHEH2018US047819

PATIENT
  Sex: Female

DRUGS (1)
  1. COSENTYX [Suspect]
     Active Substance: SECUKINUMAB
     Indication: PSORIASIS
     Dosage: 150 MG, QMO
     Route: 058
     Dates: start: 201807

REACTIONS (14)
  - Therapeutic response shortened [Unknown]
  - Device issue [Unknown]
  - Needle issue [Unknown]
  - Psoriasis [Unknown]
  - Product storage error [Unknown]
  - Wrong technique in product usage process [Unknown]
  - Drug ineffective [Unknown]
  - Injection site pain [Unknown]
  - Asthenia [Unknown]
  - Drug hypersensitivity [Unknown]
  - Pain [Unknown]
  - Injection site haemorrhage [Unknown]
  - Rash [Unknown]
  - Injection site extravasation [Unknown]
